FAERS Safety Report 8139100-1 (Version None)
Quarter: 2012Q1

REPORT INFORMATION
  Report Type: 
  Country: None (occurrence: None)
  Receive Date: 20120215
  Receipt Date: 20120208
  Transmission Date: 20120608
  Serious: Yes (Hospitalization)
  Sender: FDA-Public Use
  Company Number: DE-ABBOTT-12P-062-0902756-00

PATIENT
  Sex: Male

DRUGS (6)
  1. HUMIRA [Suspect]
     Indication: CROHN'S DISEASE
     Route: 058
     Dates: start: 20110904, end: 20120126
  2. GASTRIC PROTECTION [Concomitant]
     Indication: PROPHYLAXIS
  3. TILIDIN [Concomitant]
     Indication: PRODUCT USED FOR UNKNOWN INDICATION
     Dates: end: 20120126
  4. METHOTREXATE [Concomitant]
     Indication: PRODUCT USED FOR UNKNOWN INDICATION
  5. IBUPROFEN [Concomitant]
     Indication: PRODUCT USED FOR UNKNOWN INDICATION
     Dates: end: 20120126
  6. GASTRIC PROTECTION [Concomitant]
     Indication: GASTRIC DISORDER

REACTIONS (4)
  - NAIL BED BLEEDING [None]
  - VASCULITIS [None]
  - BORRELIA INFECTION [None]
  - ONYCHOLYSIS [None]
